FAERS Safety Report 5349010-0 (Version None)
Quarter: 2007Q2

REPORT INFORMATION
  Report Type: 
  Country: None (occurrence: None)
  Receive Date: 20070514
  Receipt Date: 20070125
  Transmission Date: 20071010
  Serious: Yes (Other)
  Sender: FDA-Public Use
  Company Number: 200616434US

PATIENT
  Age: 44 Year

DRUGS (4)
  1. APIDRA [Suspect]
     Indication: DIABETES MELLITUS INSULIN-DEPENDENT
     Dosage: 30 U QD
     Dates: start: 20050601
  2. PSEUDOEPHEDRINE HYDROCHLORIDE [Concomitant]
  3. FOSAMAX [Concomitant]
  4. FEXOFENADINE (ALLEGRA-D) [Concomitant]

REACTIONS (1)
  - HYPERGLYCAEMIA [None]
